FAERS Safety Report 5718897-1 (Version None)
Quarter: 2008Q2

REPORT INFORMATION
  Report Type: 
  Country: None (occurrence: None)
  Receive Date: 20080425
  Receipt Date: 20080409
  Transmission Date: 20081010
  Serious: Yes (Other)
  Sender: FDA-Public Use
  Company Number: US-MERCK-0803USA03923

PATIENT
  Age: 14 Year
  Sex: Female
  Weight: 41 kg

DRUGS (3)
  1. SINGULAIR [Suspect]
     Indication: ASTHMA
     Route: 048
     Dates: start: 20010101
  2. LUPRON [Concomitant]
     Indication: PRECOCIOUS PUBERTY
     Route: 030
     Dates: start: 20060101, end: 20071101
  3. [THERAPY UNSPECIFIED] [Concomitant]
     Indication: BODY HEIGHT BELOW NORMAL
     Route: 058
     Dates: start: 20070301

REACTIONS (4)
  - ANXIETY [None]
  - DEPRESSION [None]
  - PANIC ATTACK [None]
  - SUICIDAL IDEATION [None]
